FAERS Safety Report 7555057-6 (Version None)
Quarter: 2011Q2

REPORT INFORMATION
  Report Type: 
  Country: None (occurrence: None)
  Receive Date: 20110610
  Receipt Date: 20110526
  Transmission Date: 20111010
  Serious: Yes (Other)
  Sender: FDA-Public Use
  Company Number: 1000021522

PATIENT
  Age: 91 Year
  Sex: Male

DRUGS (5)
  1. ATROVENT (IPRATROPIUM BROMIDE) (IPRATROPIUM BROMIDE) [Concomitant]
  2. HYDROCOBAMINE (HYDROXOCOBALAMIN HYDROCHLORIDE) (HYDROXOCOBALAMIN HYDRO [Concomitant]
  3. MEMANTINE [Suspect]
     Indication: DEMENTIA
     Dosage: 20 MG (20 MG, 1 IN 1 D), ORAL
     Route: 048
     Dates: start: 20110129, end: 20110328
  4. FUROSEMIDE [Concomitant]
  5. CITALOPRAM (CITALOPRAM HYDROBROMIDE) (CITALOPRAM HYDROBROMIDE) [Concomitant]

REACTIONS (1)
  - EPILEPSY [None]
